FAERS Safety Report 9671021 (Version 2)
Quarter: 2013Q4

REPORT INFORMATION
  Report Type: Spontaneous
  Country: IT (occurrence: IT)
  Receive Date: 20131106
  Receipt Date: 20131106
  Transmission Date: 20140711
  Serious: Yes (Hospitalization)
  Sender: FDA-Public Use
  Company Number: IT-TEVA-434510ISR

PATIENT
  Age: 80 Year
  Sex: Female

DRUGS (10)
  1. FUROSEMIDE [Suspect]
     Dosage: 4 DOSAGE FORMS DAILY;
     Route: 048
  2. COUMADIN 5 MG [Suspect]
  3. HUMALOG [Concomitant]
  4. LANTUS [Concomitant]
  5. LERCADIP 20 MG [Concomitant]
  6. LORTAAN 50 MG [Concomitant]
  7. CATAPRESAN 300 MCG [Concomitant]
  8. KANRENOL 100 MG [Concomitant]
  9. LANOXIN 0.0625 MG [Concomitant]
  10. BISOPROLOLO EMIFUMARATO [Concomitant]

REACTIONS (3)
  - Malaise [Unknown]
  - Oliguria [Unknown]
  - International normalised ratio increased [Unknown]
